FAERS Safety Report 6752989-3 (Version None)
Quarter: 2010Q2

REPORT INFORMATION
  Report Type: 
  Country: None (occurrence: None)
  Receive Date: 20100602
  Receipt Date: 20100602
  Transmission Date: 20101027
  Serious: Yes (Hospitalization)
  Sender: FDA-Public Use
  Company Number: None

PATIENT
  Sex: Female
  Weight: 96.1626 kg

DRUGS (2)
  1. PRISTIQ [Suspect]
     Indication: CONVULSION
     Dosage: 40MG 1X MORNING
  2. VIMPAT [Suspect]
     Dosage: VIMPAT 100MG 2X MORNING AFTER

REACTIONS (4)
  - ANGINA PECTORIS [None]
  - CHEST DISCOMFORT [None]
  - DYSPNOEA [None]
  - HALLUCINATION [None]
